FAERS Safety Report 7412300-1 (Version None)
Quarter: 2011Q2

REPORT INFORMATION
  Report Type: 
  Country: None (occurrence: None)
  Receive Date: 20110413
  Receipt Date: 20110404
  Transmission Date: 20111010
  Serious: Yes (Hospitalization, Other)
  Sender: FDA-Public Use
  Company Number: US-ASTRAZENECA-2011SE13739

PATIENT
  Age: 83 Year
  Sex: Female

DRUGS (1)
  1. NEXIUM [Suspect]
     Route: 048

REACTIONS (3)
  - CARPAL TUNNEL SYNDROME [None]
  - PERIPHERAL VASCULAR DISORDER [None]
  - NEOPLASM RECURRENCE [None]
